FAERS Safety Report 9228532 (Version 1)
Quarter: 2013Q2

REPORT INFORMATION
  Report Type: Spontaneous
  Country: US (occurrence: None)
  Receive Date: 20130411
  Receipt Date: 20130411
  Transmission Date: 20140414
  Serious: Yes (Hospitalization)
  Sender: FDA-Public Use
  Company Number: None

PATIENT
  Age: 64 Year
  Sex: Male
  Weight: 152 kg

DRUGS (5)
  1. VERSED [Suspect]
     Indication: PREOPERATIVE CARE
     Dosage: 1.5MG  ONCE  IV?RECENT
     Route: 042
  2. CEFAZOLIN [Suspect]
     Indication: PREOPERATIVE CARE
     Dosage: 1 GRAM  ONCE  IVPB
  3. CALCIUM CA [Concomitant]
  4. COLACE [Concomitant]
  5. MIDODRINE [Concomitant]

REACTIONS (1)
  - Hypersensitivity [None]
